FAERS Safety Report 9169281 (Version 2)
Quarter: 2013Q2

REPORT INFORMATION
  Report Type: Spontaneous
  Country: US (occurrence: US)
  Receive Date: 20130318
  Receipt Date: 20130403
  Transmission Date: 20140414
  Serious: No
  Sender: FDA-Public Use
  Company Number: US-009507513-1303USA008302

PATIENT
  Age: 76 Year
  Sex: Male
  Weight: 94.33 kg

DRUGS (5)
  1. LOTRIMIN ULTRA [Suspect]
     Indication: TINEA CRURIS
     Dosage: UNK UNK, QD
     Route: 061
     Dates: start: 20130203, end: 20130303
  2. LOTRIMIN ULTRA [Suspect]
     Indication: FUNGAL INFECTION
  3. LOTRIMIN ULTRA [Suspect]
     Indication: MEDICAL OBSERVATION
  4. COUMADIN [Concomitant]
     Indication: ATRIAL FIBRILLATION
     Dosage: UNK, UNKNOWN
  5. COREG [Concomitant]
     Indication: ATRIAL FIBRILLATION
     Dosage: UNK, UNKNOWN

REACTIONS (2)
  - Drug ineffective [Unknown]
  - Wrong technique in drug usage process [Unknown]
